FAERS Safety Report 14667864 (Version 1)
Quarter: 2018Q1

REPORT INFORMATION
  Report Type: Spontaneous
  Country: CN (occurrence: CN)
  Receive Date: 20180322
  Receipt Date: 20180322
  Transmission Date: 20180509
  Serious: Yes (Other)
  Sender: FDA-Public Use
  Company Number: CN-FRESENIUS KABI-FK201803475

PATIENT
  Age: 57 Year
  Sex: Male

DRUGS (6)
  1. POLYMYXIN B. [Concomitant]
     Active Substance: POLYMYXIN B
     Indication: CNS VENTRICULITIS
     Route: 042
  2. POLYMYXIN B (MANUFACTURER UNKNOWN) [Suspect]
     Active Substance: POLYMYXIN B
     Indication: CNS VENTRICULITIS
     Route: 037
  3. POLYMYXIN B. [Concomitant]
     Active Substance: POLYMYXIN B
     Indication: ACINETOBACTER INFECTION
     Route: 042
  4. POLYMYXIN B (MANUFACTURER UNKNOWN) [Suspect]
     Active Substance: POLYMYXIN B
     Indication: ACINETOBACTER INFECTION
     Route: 050
  5. TIGECYCLINE. [Concomitant]
     Active Substance: TIGECYCLINE
     Indication: ACINETOBACTER INFECTION
  6. TIGECYCLINE. [Concomitant]
     Active Substance: TIGECYCLINE
     Indication: CNS VENTRICULITIS
     Route: 042

REACTIONS (2)
  - Adhesion [Recovered/Resolved]
  - Cerebral ventricle collapse [Recovered/Resolved]
